FAERS Safety Report 6369998-9 (Version None)
Quarter: 2009Q3

REPORT INFORMATION
  Report Type: 
  Country: None (occurrence: None)
  Receive Date: 20090923
  Receipt Date: 20070507
  Transmission Date: 20100115
  Serious: No
  Sender: FDA-Public Use
  Company Number: US-ASTRAZENECA-2006UW07869

PATIENT
  Age: 10906 Day
  Sex: Female
  Weight: 88 kg

DRUGS (7)
  1. SEROQUEL [Suspect]
     Indication: BIPOLAR DISORDER
     Dosage: 25 MG TO 100 MG
     Route: 048
     Dates: start: 20020108
  2. SEROQUEL [Suspect]
     Indication: SLEEP DISORDER
     Dosage: 25 MG TO 100 MG
     Route: 048
     Dates: start: 20020108
  3. HALDOL [Concomitant]
     Dates: start: 19930101, end: 19950101
  4. CLONAZEPAM [Concomitant]
     Route: 048
     Dates: start: 20051125
  5. HYDROCODONE [Concomitant]
     Dosage: 5 TO 500 MG
     Route: 048
     Dates: start: 20050926
  6. ATENOLOL [Concomitant]
     Dosage: 25 TO 50 MG
     Route: 048
     Dates: start: 20041214
  7. ASPIRIN [Concomitant]
     Dosage: 650 MG, 2 TAB EVERY 4 HRLY
     Route: 048
     Dates: start: 20020304

REACTIONS (3)
  - DIABETES MELLITUS [None]
  - GESTATIONAL DIABETES [None]
  - TYPE 2 DIABETES MELLITUS [None]
